FAERS Safety Report 13301539 (Version 1)
Quarter: 2017Q1

REPORT INFORMATION
  Report Type: Spontaneous
  Country: GB (occurrence: GB)
  Receive Date: 20170307
  Receipt Date: 20170307
  Transmission Date: 20170428
  Serious: Yes (Other)
  Sender: FDA-Public Use
  Company Number: GB-AUROBINDO-AUR-APL-2017-30412

PATIENT
  Age: 59 Year
  Sex: Male

DRUGS (3)
  1. NAPROXEN TABLETS 500 MG [Suspect]
     Active Substance: NAPROXEN
     Indication: ARTHRITIS
     Dosage: ONE TABLET PER DAY
     Route: 048
  2. FERROUS FUMARATE [Concomitant]
     Active Substance: FERROUS FUMARATE
     Indication: ANAEMIA
     Dosage: 210 MG, UNK
     Route: 065
  3. OMEPRAZOLE. [Concomitant]
     Active Substance: OMEPRAZOLE
     Indication: OESOPHAGEAL ULCER
     Route: 065

REACTIONS (7)
  - Haemorrhage [Unknown]
  - Gastrooesophageal reflux disease [Unknown]
  - Anaemia [Unknown]
  - Oesophageal ulcer [Unknown]
  - Feeling abnormal [Unknown]
  - Haematemesis [Unknown]
  - Loss of consciousness [Unknown]

NARRATIVE: CASE EVENT DATE: 20151020
